FAERS Safety Report 24242160 (Version 2)
Quarter: 2024Q3

REPORT INFORMATION
  Report Type: Report from Study
  Country: CO (occurrence: CO)
  Receive Date: 20240823
  Receipt Date: 20240830
  Transmission Date: 20241017
  Serious: Yes (Death, Hospitalization, Other)
  Sender: NOVARTIS
  Company Number: CO-002147023-NVSC2024CO118743

PATIENT
  Age: 50 Year
  Sex: Female
  Weight: 60 kg

DRUGS (3)
  1. TASIGNA [Suspect]
     Active Substance: NILOTINIB
     Indication: Chronic myeloid leukaemia
     Dosage: 400 MG (EVERY 12 HOURS)
     Route: 048
     Dates: start: 20240216
  2. ACETAMINOPHEN [Concomitant]
     Active Substance: ACETAMINOPHEN
     Indication: Product used for unknown indication
     Dosage: UNK
     Route: 065
  3. FOLIC ACID [Concomitant]
     Active Substance: FOLIC ACID
     Indication: Product used for unknown indication
     Dosage: UNK
     Route: 065

REACTIONS (12)
  - Cardiac arrest [Fatal]
  - Angina unstable [Fatal]
  - Abdominal pain upper [Unknown]
  - Visual impairment [Unknown]
  - Oxygen saturation decreased [Unknown]
  - Malaise [Unknown]
  - General physical health deterioration [Unknown]
  - Decreased appetite [Unknown]
  - Discouragement [Unknown]
  - Gastritis [Unknown]
  - Pulmonary oedema [Unknown]
  - Abdominal distension [Unknown]

NARRATIVE: CASE EVENT DATE: 20240726
